FAERS Safety Report 16020827 (Version 1)
Quarter: 2019Q1

REPORT INFORMATION
  Report Type: Spontaneous
  Country: US (occurrence: US)
  Receive Date: 20190301
  Receipt Date: 20190301
  Transmission Date: 20190418
  Serious: Yes (Other)
  Sender: FDA-Public Use
  Company Number: US-GLAXOSMITHKLINE-US2019035249

PATIENT
  Sex: Female

DRUGS (2)
  1. CARVEDILOL. [Suspect]
     Active Substance: CARVEDILOL
     Indication: PRODUCT USED FOR UNKNOWN INDICATION
     Dosage: UNK
  2. COREG [Suspect]
     Active Substance: CARVEDILOL
     Indication: PRODUCT USED FOR UNKNOWN INDICATION
     Dosage: 2 DF, QD, TOOK TWO 3.25MG TABLETS EVERY NIGHT

REACTIONS (7)
  - White blood cell count decreased [Unknown]
  - Insomnia [Unknown]
  - Choking [Unknown]
  - Product supply issue [Unknown]
  - Swollen tongue [Unknown]
  - Neutropenia [Unknown]
  - Mouth swelling [Unknown]
